FAERS Safety Report 8735541 (Version 7)
Quarter: 2013Q3

REPORT INFORMATION
  Report Type: Report from Study
  Country: DE (occurrence: DE)
  Receive Date: 20120822
  Receipt Date: 20130822
  Transmission Date: 20140515
  Serious: Yes (Hospitalization)
  Sender: FDA-Public Use
  Company Number: PHHO2012DE012136

PATIENT
  Age: 3 Year
  Sex: Male
  Weight: 15 kg

DRUGS (3)
  1. ACZ885 [Suspect]
     Indication: JUVENILE IDIOPATHIC ARTHRITIS
     Dosage: 4 MG, UNK
     Route: 058
     Dates: start: 20120514, end: 20121107
  2. PREDNISOLONE [Suspect]
  3. DECORTIN [Suspect]
     Dosage: 2.5 MG, UNK
     Route: 048
     Dates: start: 20120214, end: 20121107

REACTIONS (3)
  - Sepsis [Recovered/Resolved]
  - Enterococcal infection [Recovered/Resolved]
  - Infected fistula [Recovered/Resolved]
